FAERS Safety Report 4895537-5 (Version None)
Quarter: 2006Q1

REPORT INFORMATION
  Report Type: 
  Country: None (occurrence: None)
  Receive Date: 20060125
  Receipt Date: 20060112
  Transmission Date: 20060701
  Serious: Yes (Other)
  Sender: FDA-Public Use
  Company Number: 2006007546

PATIENT
  Age: 58 Year
  Sex: Female
  Weight: 52.1637 kg

DRUGS (7)
  1. CELEBREX [Suspect]
     Indication: OSTEOARTHRITIS
     Dosage: (200 MG), ORAL
     Route: 048
  2. CORTICOSTEROIDS (CORTICOSTEROIDS) [Suspect]
     Indication: ILL-DEFINED DISORDER
  3. PROZAC [Concomitant]
  4. DIAZEPAM [Concomitant]
  5. CHLORAL HYDRATE (CHLORAL HYDRATE) [Concomitant]
  6. PROVERA [Concomitant]
  7. SYNTHROID [Concomitant]

REACTIONS (10)
  - ALOPECIA [None]
  - CONDITION AGGRAVATED [None]
  - DRUG HYPERSENSITIVITY [None]
  - EYE INFECTION [None]
  - FIBROMYALGIA [None]
  - IMPAIRED HEALING [None]
  - KNEE OPERATION [None]
  - OSTEOARTHRITIS [None]
  - RASH [None]
  - WRIST SURGERY [None]
